FAERS Safety Report 7355380-4 (Version None)
Quarter: 2011Q1

REPORT INFORMATION
  Report Type: 
  Country: None (occurrence: None)
  Receive Date: 20110316
  Receipt Date: 20110309
  Transmission Date: 20110831
  Serious: Yes (Other)
  Sender: FDA-Public Use
  Company Number: US-ROCHE-764872

PATIENT
  Sex: Male
  Weight: 81.6 kg

DRUGS (2)
  1. CAPECITABINE [Suspect]
     Indication: COLON CANCER
     Dosage: FREQUENCY: MORNING (AM) AND EVENING (PM)
     Route: 048
     Dates: start: 20101201
  2. PERCOCET [Concomitant]

REACTIONS (4)
  - ILL-DEFINED DISORDER [None]
  - VOMITING [None]
  - FEELING COLD [None]
  - COLOSTOMY [None]
